FAERS Safety Report 6649971-3 (Version None)
Quarter: 2010Q1

REPORT INFORMATION
  Report Type: 
  Country: None (occurrence: None)
  Receive Date: 20100325
  Receipt Date: 20100311
  Transmission Date: 20100710
  Serious: Yes (Other)
  Sender: FDA-Public Use
  Company Number: ES-RANBAXY-2010RR-32535

PATIENT
  Age: 12 Year
  Sex: Male

DRUGS (1)
  1. TOPIRAMATE [Suspect]
     Indication: MIGRAINE WITH AURA
     Dosage: 25 MG, BID

REACTIONS (3)
  - MIGRAINE [None]
  - NAUSEA [None]
  - VOMITING [None]
